FAERS Safety Report 16127836 (Version 1)
Quarter: 2019Q1

REPORT INFORMATION
  Report Type: Spontaneous
  Country: US (occurrence: US)
  Receive Date: 20190224
  Receipt Date: 20190224
  Transmission Date: 20190418
  Serious: No
  Sender: FDA-Public Use
  Company Number: None

PATIENT
  Age: 61 Year
  Sex: Male

DRUGS (4)
  1. ABILIFY [Concomitant]
     Active Substance: ARIPIPRAZOLE
  2. BUPROPION. [Concomitant]
     Active Substance: BUPROPION
  3. MIDODRINE [Concomitant]
     Active Substance: MIDODRINE
  4. DALFAMPRIDINE 10MG ER TAB [Suspect]
     Active Substance: DALFAMPRIDINE
     Dosage: ?          OTHER DOSE:1 TABLET;?
     Route: 048
     Dates: start: 20190115

REACTIONS (4)
  - Balance disorder [None]
  - Mobility decreased [None]
  - Memory impairment [None]
  - Therapy cessation [None]

NARRATIVE: CASE EVENT DATE: 20190214
